FAERS Safety Report 16753316 (Version 1)
Quarter: 2019Q3

REPORT INFORMATION
  Report Type: Spontaneous
  Country: JP (occurrence: JP)
  Receive Date: 20190829
  Receipt Date: 20190829
  Transmission Date: 20191005
  Serious: Yes (Other)
  Sender: FDA-Public Use
  Company Number: JP-ASTELLAS-2019JP018064

PATIENT
  Sex: Male

DRUGS (2)
  1. TARIVID                            /00731801/ [Concomitant]
     Active Substance: OFLOXACIN
     Indication: PROPHYLAXIS
     Dosage: UNK UNK, UNKNOWN FREQ.
     Route: 048
  2. XTANDI [Suspect]
     Active Substance: ENZALUTAMIDE
     Indication: PROSTATE CANCER
     Dosage: UNK, UNKNOWN FREQ.
     Route: 048

REACTIONS (7)
  - Oropharyngeal pain [Recovering/Resolving]
  - Dehydration [Unknown]
  - Prostatic specific antigen increased [Unknown]
  - Saliva discolouration [Unknown]
  - Blood pressure abnormal [Unknown]
  - Acquired diaphragmatic eventration [Unknown]
  - Pleural effusion [Unknown]

NARRATIVE: CASE EVENT DATE: 20190821
